FAERS Safety Report 8025392-6 (Version None)
Quarter: 2012Q1

REPORT INFORMATION
  Report Type: 
  Country: None (occurrence: None)
  Receive Date: 20120105
  Receipt Date: 20120102
  Transmission Date: 20120608
  Serious: Yes (Other)
  Sender: FDA-Public Use
  Company Number: FR-PFIZER INC-2012000780

PATIENT
  Sex: Female

DRUGS (1)
  1. VARENICLINE TARTRATE [Suspect]
     Indication: SMOKING CESSATION THERAPY
     Dosage: UNKNOWN
     Dates: start: 20070101, end: 20070101

REACTIONS (4)
  - DISORIENTATION [None]
  - DISTURBANCE IN SOCIAL BEHAVIOUR [None]
  - SELF ESTEEM DECREASED [None]
  - AGGRESSION [None]
